FAERS Safety Report 4630798-9 (Version None)
Quarter: 2005Q2

REPORT INFORMATION
  Report Type: 
  Country: None (occurrence: None)
  Receive Date: 20050408
  Receipt Date: 20050401
  Transmission Date: 20051028
  Serious: Yes (Hospitalization)
  Sender: FDA-Public Use
  Company Number: CH-ROCHE-400648

PATIENT
  Age: 85 Year
  Sex: Female

DRUGS (9)
  1. TOREM [Suspect]
     Indication: DRUG USE FOR UNKNOWN INDICATION
     Route: 048
     Dates: end: 20050306
  2. CIPROXIN [Suspect]
     Indication: URINARY TRACT INFECTION
     Route: 048
     Dates: start: 20050226, end: 20050306
  3. RENITEN [Suspect]
     Indication: DRUG USE FOR UNKNOWN INDICATION
     Route: 048
     Dates: end: 20050306
  4. ASPIRIN [Suspect]
     Indication: DRUG USE FOR UNKNOWN INDICATION
     Route: 048
  5. DIGOXIN [Concomitant]
     Route: 048
     Dates: end: 20050306
  6. SERESTA [Concomitant]
     Route: 048
  7. PREDNISONE [Concomitant]
     Route: 048
     Dates: start: 20050226, end: 20050307
  8. NITRODERM [Concomitant]
     Route: 062
  9. MYCOSTATIN [Concomitant]

REACTIONS (1)
  - RENAL FAILURE ACUTE [None]
